FAERS Safety Report 21205987 (Version 2)
Quarter: 2022Q3

REPORT INFORMATION
  Report Type: Spontaneous
  Country: US (occurrence: None)
  Receive Date: 20220812
  Receipt Date: 20220927
  Transmission Date: 20221026
  Serious: Yes (Other)
  Sender: FDA-Public Use
  Company Number: 2022A278895

PATIENT
  Age: 78 Year
  Sex: Female

DRUGS (1)
  1. EVUSHELD [Suspect]
     Active Substance: CILGAVIMAB\TIXAGEVIMAB
     Indication: Autoimmune disorder
     Dosage: 600.0MG ONCE/SINGLE ADMINISTRATION
     Route: 030
     Dates: start: 20220420, end: 20220420

REACTIONS (1)
  - Ventricular tachycardia [Recovered/Resolved]
